FAERS Safety Report 11636820 (Version 1)
Quarter: 2015Q4

REPORT INFORMATION
  Report Type: Spontaneous
  Country: US (occurrence: US)
  Receive Date: 20151016
  Receipt Date: 20151016
  Transmission Date: 20160304
  Serious: No
  Sender: FDA-Public Use
  Company Number: US-GALDERMA-US15006069

PATIENT
  Age: 27 Year
  Sex: Male
  Weight: 77.27 kg

DRUGS (1)
  1. SOOLANTRA [Suspect]
     Active Substance: IVERMECTIN
     Indication: ROSACEA
     Dosage: 1%
     Route: 061
     Dates: start: 20150707, end: 20150712

REACTIONS (5)
  - Skin exfoliation [Recovered/Resolved]
  - Skin irritation [Recovered/Resolved]
  - Blister [Recovered/Resolved]
  - Dermatitis contact [Recovered/Resolved]
  - Erythema [Recovered/Resolved]

NARRATIVE: CASE EVENT DATE: 20150707
